FAERS Safety Report 11454567 (Version 1)
Quarter: 2015Q3

REPORT INFORMATION
  Report Type: Spontaneous
  Country: US (occurrence: US)
  Receive Date: 20150831
  Receipt Date: 20150831
  Transmission Date: 20151125
  Serious: No
  Sender: FDA-Public Use
  Company Number: US-ELI_LILLY_AND_COMPANY-US201004004761

PATIENT
  Sex: Female

DRUGS (2)
  1. CYMBALTA [Suspect]
     Active Substance: DULOXETINE HYDROCHLORIDE
     Dosage: 20 MG, DAILY (1/D)
  2. CYMBALTA [Suspect]
     Active Substance: DULOXETINE HYDROCHLORIDE
     Indication: DEPRESSION
     Dosage: 40 MG, DAILY (1/D)

REACTIONS (18)
  - Blood glucose abnormal [Unknown]
  - Contusion [Unknown]
  - Energy increased [Unknown]
  - Feeling abnormal [Unknown]
  - Dizziness [Unknown]
  - Drug withdrawal syndrome [Unknown]
  - Limb discomfort [Unknown]
  - Mental impairment [Unknown]
  - Nasal discomfort [Unknown]
  - Dry mouth [Unknown]
  - Hyperhidrosis [Unknown]
  - Pain in extremity [Unknown]
  - Pain [Unknown]
  - Dry eye [Unknown]
  - Peripheral coldness [Unknown]
  - Insomnia [Unknown]
  - Vasoconstriction [Unknown]
  - Glucose tolerance impaired [Unknown]
